FAERS Safety Report 26019367 (Version 1)
Quarter: 2025Q4

REPORT INFORMATION
  Report Type: Spontaneous
  Country: CA (occurrence: CA)
  Receive Date: 20251110
  Receipt Date: 20251110
  Transmission Date: 20260119
  Serious: Yes (Other)
  Sender: ACCORD
  Company Number: CA-Accord-511924

PATIENT
  Age: 16 Year
  Sex: Female

DRUGS (1)
  1. HYDROXYCHLOROQUINE [Suspect]
     Active Substance: HYDROXYCHLOROQUINE
     Indication: Systemic lupus erythematosus

REACTIONS (6)
  - Cardiomyopathy [Unknown]
  - Ventricular dysfunction [Unknown]
  - Left ventricular hypertrophy [Unknown]
  - Atrial thrombosis [Unknown]
  - Cardiac failure chronic [Unknown]
  - Cardiogenic shock [Unknown]
